FAERS Safety Report 7768199-7 (Version None)
Quarter: 2011Q3

REPORT INFORMATION
  Report Type: 
  Country: None (occurrence: None)
  Receive Date: 20110922
  Receipt Date: 20110922
  Transmission Date: 20111222
  Serious: Yes (Life-Threatening, Hospitalization)
  Sender: FDA-Public Use
  Company Number: None

PATIENT
  Age: 73 Year
  Sex: Male
  Weight: 91.5 kg

DRUGS (13)
  1. RECOMBINANT T-PA [Concomitant]
     Indication: THROMBECTOMY
     Dosage: 8 MG
     Route: 042
     Dates: start: 20110912, end: 20110912
  2. ALLOPURINOL [Concomitant]
  3. HYDRALAZINE HCL [Concomitant]
     Route: 048
  4. ROSUVASTATIN [Concomitant]
  5. LANTUS [Concomitant]
     Route: 058
  6. OXILAN-300 [Suspect]
     Indication: THROMBECTOMY
     Dosage: 75 ML
     Route: 042
     Dates: start: 20110912, end: 20110912
  7. FLUTICASONE PROPIONATE [Concomitant]
  8. HECTOROL [Concomitant]
  9. METOPROLOL TARTRATE [Concomitant]
     Route: 048
  10. ASPIRIN [Concomitant]
  11. PHOSLO [Concomitant]
  12. NIFEDIPINE [Concomitant]
     Route: 048
  13. SENSIPAR [Concomitant]

REACTIONS (2)
  - SPEECH DISORDER [None]
  - SWOLLEN TONGUE [None]
